FAERS Safety Report 23949854 (Version 2)
Quarter: 2024Q2

REPORT INFORMATION
  Report Type: Spontaneous
  Country: RO (occurrence: RO)
  Receive Date: 20240607
  Receipt Date: 20240613
  Transmission Date: 20240716
  Serious: Yes (Other)
  Sender: FDA-Public Use
  Company Number: RO-PFIZER INC-202400186771

PATIENT
  Age: 54 Year
  Sex: Female

DRUGS (5)
  1. BRENTUXIMAB VEDOTIN [Suspect]
     Active Substance: BRENTUXIMAB VEDOTIN
     Indication: Hodgkin^s disease
     Dosage: UNK, CYCLIC
     Dates: start: 202207
  2. BRENTUXIMAB VEDOTIN [Suspect]
     Active Substance: BRENTUXIMAB VEDOTIN
     Dosage: 0.9 MG/KG
  3. DOXORUBICIN [Concomitant]
     Active Substance: DOXORUBICIN
     Indication: Hodgkin^s disease
     Dosage: UNK, CYCLIC, SIX CYCLES
     Dates: start: 202207
  4. VINBLASTINE [Concomitant]
     Active Substance: VINBLASTINE
     Indication: Hodgkin^s disease
     Dosage: UNK, CYCLIC, SIX CYCLES
     Dates: start: 202207
  5. DACARBAZINE [Concomitant]
     Active Substance: DACARBAZINE
     Indication: Hodgkin^s disease
     Dosage: UNK, CYCLIC, SIX CYCLES
     Dates: start: 202207

REACTIONS (2)
  - Immune thrombocytopenia [Recovered/Resolved]
  - Vitiligo [Unknown]
